FAERS Safety Report 9207142 (Version 2)
Quarter: 2013Q2

REPORT INFORMATION
  Report Type: Spontaneous
  Country: GB (occurrence: GB)
  Receive Date: 20130403
  Receipt Date: 20130403
  Transmission Date: 20140414
  Serious: Yes (Hospitalization)
  Sender: FDA-Public Use
  Company Number: GB-TEVA-2005-CZ-01411

PATIENT
  Age: 44 Year
  Sex: Female

DRUGS (5)
  1. SODIUM VALPROATE [Suspect]
  2. IBUPROFEN [Suspect]
  3. TERAZOSIN HYDROCHLORIDE [Suspect]
     Route: 048
     Dates: start: 20050818
  4. CLOZAPINE [Suspect]
  5. BENZATROPINE MESILATE [Suspect]

REACTIONS (3)
  - Diarrhoea [Not Recovered/Not Resolved]
  - Myoclonus [Not Recovered/Not Resolved]
  - Pneumonia [Unknown]
